FAERS Safety Report 20321577 (Version 1)
Quarter: 2022Q1

REPORT INFORMATION
  Report Type: Report from Study
  Country: IT (occurrence: IT)
  Receive Date: 20220111
  Receipt Date: 20220111
  Transmission Date: 20220423
  Serious: Yes (Other)
  Sender: FDA-Public Use
  Company Number: None

PATIENT
  Age: 77 Year
  Sex: Male

DRUGS (1)
  1. NIVOLUMAB [Suspect]
     Active Substance: NIVOLUMAB
     Indication: Metastatic malignant melanoma
     Dosage: 420 MG CYCLICAL
     Route: 065
     Dates: start: 20210927

REACTIONS (7)
  - Adrenal insufficiency [Unknown]
  - Hypotension [Unknown]
  - Decreased appetite [Unknown]
  - Somnolence [Unknown]
  - Weight decreased [Unknown]
  - Asthenia [Unknown]
  - Off label use [Unknown]

NARRATIVE: CASE EVENT DATE: 20211217
